FAERS Safety Report 10201104 (Version 1)
Quarter: 2014Q2

REPORT INFORMATION
  Report Type: Spontaneous
  Country: KE (occurrence: KE)
  Receive Date: 20140528
  Receipt Date: 20140528
  Transmission Date: 20141212
  Serious: Yes (Hospitalization)
  Sender: FDA-Public Use
  Company Number: PHHY2014KE052580

PATIENT
  Age: 7 Year
  Sex: Male

DRUGS (2)
  1. COARTEM [Suspect]
     Indication: MALARIA
     Dosage: 2 DF, DAILY
     Route: 048
     Dates: start: 20140316, end: 20140318
  2. PARACETAMOL [Concomitant]
     Dosage: UNK UKN, UNK

REACTIONS (1)
  - Condition aggravated [Recovered/Resolved]
